FAERS Safety Report 10535481 (Version 4)
Quarter: 2015Q3

REPORT INFORMATION
  Report Type: Report from Study
  Country: US (occurrence: US)
  Receive Date: 20141022
  Receipt Date: 20150826
  Transmission Date: 20151125
  Serious: Yes (Hospitalization)
  Sender: FDA-Public Use
  Company Number: US-BAYER-2014-149252

PATIENT
  Age: 61 Year
  Sex: Female

DRUGS (4)
  1. STIVARGA [Suspect]
     Active Substance: REGORAFENIB
     Indication: COLON CANCER
     Dosage: 3 TABLETS DAILY
     Route: 048
  2. STIVARGA [Suspect]
     Active Substance: REGORAFENIB
     Indication: COLON CANCER
     Dosage: 160 MG, DAILY
     Route: 048
     Dates: start: 20140906, end: 20140930
  3. STIVARGA [Suspect]
     Active Substance: REGORAFENIB
     Indication: COLON CANCER
     Dosage: 160 MG, DAILY
     Route: 048
     Dates: start: 20140906, end: 20140930
  4. STIVARGA [Suspect]
     Active Substance: REGORAFENIB
     Indication: COLON CANCER
     Dosage: 40 MG, UNK
     Route: 048
     Dates: end: 20150714

REACTIONS (7)
  - Drug ineffective [None]
  - Hypertension [Recovered/Resolved]
  - Dehydration [Recovered/Resolved]
  - Palmar-plantar erythrodysaesthesia syndrome [Recovered/Resolved]
  - Underdose [None]
  - Diarrhoea [Recovered/Resolved]
  - Stomatitis [Recovered/Resolved]

NARRATIVE: CASE EVENT DATE: 201409
